FAERS Safety Report 10176935 (Version 1)
Quarter: 2014Q2

REPORT INFORMATION
  Report Type: Spontaneous
  Country: US (occurrence: US)
  Receive Date: 20140516
  Receipt Date: 20140516
  Transmission Date: 20141212
  Serious: Yes (Death, Other)
  Sender: FDA-Public Use
  Company Number: US-009507513-1405USA007034

PATIENT
  Sex: Male
  Weight: 86.17 kg

DRUGS (4)
  1. JANUVIA [Suspect]
     Indication: TYPE 2 DIABETES MELLITUS
     Dosage: 100 MG, QD
     Route: 048
     Dates: start: 20100322, end: 20120312
  2. NOVOLOG [Concomitant]
     Indication: TYPE 2 DIABETES MELLITUS
  3. LANTUS [Concomitant]
     Indication: TYPE 2 DIABETES MELLITUS
  4. METFORMIN [Concomitant]
     Indication: TYPE 2 DIABETES MELLITUS
     Dosage: 500 MG, QD-BID
     Route: 048

REACTIONS (20)
  - Adenocarcinoma pancreas [Unknown]
  - Metastases to liver [Unknown]
  - Ischaemic stroke [Fatal]
  - Neuropathy peripheral [Unknown]
  - Ascites [Unknown]
  - Abdominal cavity drainage [Unknown]
  - Diabetes mellitus inadequate control [Unknown]
  - Gastrooesophageal reflux disease [Unknown]
  - Aortic arteriosclerosis [Unknown]
  - Aortic aneurysm [Unknown]
  - Arteriosclerosis coronary artery [Unknown]
  - Emphysema [Unknown]
  - Suprapubic pain [Unknown]
  - Cardiac murmur [Unknown]
  - Arthritis [Unknown]
  - Large intestine polyp [Unknown]
  - Decreased appetite [Unknown]
  - Bronchitis [Unknown]
  - Haematuria [Unknown]
  - Arthralgia [Not Recovered/Not Resolved]
